FAERS Safety Report 8422406-6 (Version None)
Quarter: 2012Q2

REPORT INFORMATION
  Report Type: 
  Country: None (occurrence: None)
  Receive Date: 20120608
  Receipt Date: 20120530
  Transmission Date: 20120825
  Serious: Yes (Death, Hospitalization)
  Sender: FDA-Public Use
  Company Number: ES-EISAI INC-E3810-05598-SPO-ES

PATIENT
  Sex: Male
  Weight: 104 kg

DRUGS (6)
  1. PREDNISONE TAB [Concomitant]
     Indication: HIDRADENITIS
  2. RABEPRAZOLE SODIUM [Suspect]
     Indication: GASTROINTESTINAL DISORDER THERAPY
     Dosage: UNKNOWN
     Route: 048
  3. STELARA [Suspect]
     Route: 058
     Dates: start: 20120404, end: 20120404
  4. STELARA [Suspect]
     Indication: PYODERMA GANGRENOSUM
     Route: 058
     Dates: start: 20120301, end: 20120401
  5. SINTROM [Concomitant]
     Dates: start: 20110301, end: 20120401
  6. CALCIUM [Concomitant]
     Indication: HIDRADENITIS

REACTIONS (1)
  - PULMONARY EMBOLISM [None]
